FAERS Safety Report 25109497 (Version 1)
Quarter: 2025Q1

REPORT INFORMATION
  Report Type: Spontaneous
  Country: US (occurrence: US)
  Receive Date: 20250323
  Receipt Date: 20250323
  Transmission Date: 20250409
  Serious: No
  Sender: CIPLA
  Company Number: US-CIPLA LTD.-2024US02609

PATIENT

DRUGS (2)
  1. SERTRALINE [Suspect]
     Active Substance: SERTRALINE HYDROCHLORIDE
     Indication: Anxiety
     Dosage: 100 MILLIGRAM, QD, (YEARS AGO)
     Route: 048
  2. SERTRALINE [Suspect]
     Active Substance: SERTRALINE HYDROCHLORIDE
     Indication: Depression

REACTIONS (4)
  - Eye irritation [Recovered/Resolved]
  - Lacrimation increased [Recovered/Resolved]
  - Exposure via inhalation [Recovered/Resolved]
  - Product odour abnormal [Unknown]

NARRATIVE: CASE EVENT DATE: 20240303
